FAERS Safety Report 6290867-7 (Version None)
Quarter: 2009Q3

REPORT INFORMATION
  Report Type: 
  Country: None (occurrence: None)
  Receive Date: 20090728
  Receipt Date: 20090728
  Transmission Date: 20100115
  Serious: Yes (Hospitalization)
  Sender: FDA-Public Use
  Company Number: None

PATIENT
  Sex: Male
  Weight: 120.4 kg

DRUGS (1)
  1. TEMOZOLOMIDE [Suspect]
     Dosage: PT STARTED TEMOZOLOMIDE ON FIRST DAY OF RADIATION
     Dates: start: 20090722

REACTIONS (2)
  - CONSTIPATION [None]
  - LARGE INTESTINE PERFORATION [None]
